FAERS Safety Report 15243242 (Version 20)
Quarter: 2023Q4

REPORT INFORMATION
  Report Type: Other
  Country: CA (occurrence: None)
  Receive Date: 20180806
  Receipt Date: 20231208
  Transmission Date: 20240110
  Serious: Yes (Other)
  Sender: FDA-Public Use
  Company Number: CA-ROCHE-2161648

PATIENT
  Age: 37 Year
  Sex: Female
  Weight: 86.26 kg

DRUGS (15)
  1. OCREVUS [Suspect]
     Active Substance: OCRELIZUMAB
     Indication: Relapsing-remitting multiple sclerosis
     Dosage: 300 MG DAY 0 AND DAY 14 THEN 600 MG EVERY 6 MONTHS?7/JAN/2019 AND 15/JUL/2019, RECEIVED TREATMENT
     Route: 042
     Dates: start: 20180703
  2. OCREVUS [Suspect]
     Active Substance: OCRELIZUMAB
     Route: 042
     Dates: start: 201808
  3. PREDNISONE [Suspect]
     Active Substance: PREDNISONE
     Indication: Premedication
     Route: 065
  4. CLONAZEPAM [Suspect]
     Active Substance: CLONAZEPAM
     Indication: Product used for unknown indication
     Dosage: NEXT DOSE 0.5 MG IV
     Route: 048
  5. FOLIC ACID [Concomitant]
     Active Substance: FOLIC ACID
  6. LAMOTRIGINE [Concomitant]
     Active Substance: LAMOTRIGINE
  7. MIRTAZAPINE [Concomitant]
     Active Substance: MIRTAZAPINE
  8. OXAZEPAM [Concomitant]
     Active Substance: OXAZEPAM
  9. PHENYTOIN [Concomitant]
     Active Substance: PHENYTOIN
  10. ZOPICLONE [Concomitant]
     Active Substance: ZOPICLONE
  11. PREGABALIN [Concomitant]
     Active Substance: PREGABALIN
     Indication: Neuralgia
  12. PREGABALIN [Concomitant]
     Active Substance: PREGABALIN
     Dosage: 75 MG 2 TABS A DAY
  13. PANTOPRAZOLE [Concomitant]
     Active Substance: PANTOPRAZOLE
  14. INDOMETHACIN [Concomitant]
     Active Substance: INDOMETHACIN
  15. MAGNESIUM [Concomitant]
     Active Substance: MAGNESIUM

REACTIONS (37)
  - White matter lesion [Unknown]
  - Multiple sclerosis [Recovering/Resolving]
  - Arthritis [Unknown]
  - Eye infection [Not Recovered/Not Resolved]
  - Vertebral osteophyte [Unknown]
  - Fall [Unknown]
  - Fatigue [Not Recovered/Not Resolved]
  - Insomnia [Not Recovered/Not Resolved]
  - Nasopharyngitis [Not Recovered/Not Resolved]
  - Immunosuppression [Unknown]
  - Pharyngeal disorder [Unknown]
  - Nausea [Not Recovered/Not Resolved]
  - Gastroenteritis viral [Unknown]
  - Influenza [Recovered/Resolved]
  - Chills [Unknown]
  - Pain [Unknown]
  - Vomiting [Recovered/Resolved]
  - Weight increased [Unknown]
  - Oedema peripheral [Recovering/Resolving]
  - Infection [Unknown]
  - Hypersomnia [Not Recovered/Not Resolved]
  - Pain in extremity [Not Recovered/Not Resolved]
  - Therapeutic response shortened [Not Recovered/Not Resolved]
  - Intervertebral disc protrusion [Not Recovered/Not Resolved]
  - Food craving [Recovered/Resolved]
  - Seizure [Recovered/Resolved]
  - Muscle strain [Recovered/Resolved]
  - COVID-19 [Not Recovered/Not Resolved]
  - Temperature intolerance [Recovering/Resolving]
  - Clumsiness [Recovering/Resolving]
  - Ear infection [Unknown]
  - Gait disturbance [Unknown]
  - Illness [Unknown]
  - Brain fog [Not Recovered/Not Resolved]
  - Cognitive disorder [Not Recovered/Not Resolved]
  - COVID-19 [Unknown]
  - Memory impairment [Not Recovered/Not Resolved]

NARRATIVE: CASE EVENT DATE: 20181201
